FAERS Safety Report 7157176-5 (Version None)
Quarter: 2010Q4

REPORT INFORMATION
  Report Type: 
  Country: None (occurrence: None)
  Receive Date: 20101214
  Receipt Date: 20091116
  Transmission Date: 20110411
  Serious: No
  Sender: FDA-Public Use
  Company Number: US-ASTRAZENECA-2009SE33224

PATIENT

DRUGS (2)
  1. CRESTOR [Suspect]
     Route: 048
  2. TRILIPIX [Suspect]
     Route: 065

REACTIONS (2)
  - BLOOD CREATININE INCREASED [None]
  - LIVER FUNCTION TEST ABNORMAL [None]
